FAERS Safety Report 17723365 (Version 1)
Quarter: 2020Q2

REPORT INFORMATION
  Report Type: Spontaneous
  Country: US (occurrence: US)
  Receive Date: 20200428
  Receipt Date: 20200428
  Transmission Date: 20200714
  Serious: No
  Sender: FDA-Public Use
  Company Number: None

PATIENT
  Age: 81 Year
  Sex: Male

DRUGS (1)
  1. BORTEZOMIB 3.5MG PWD SDV INJ [Suspect]
     Active Substance: BORTEZOMIB
     Dosage: ?          OTHER FREQUENCY:UNKNOWN;?
     Route: 042
     Dates: start: 2020

REACTIONS (2)
  - Coronavirus infection [None]
  - Therapy cessation [None]

NARRATIVE: CASE EVENT DATE: 20200428
